FAERS Safety Report 14393521 (Version 1)
Quarter: 2018Q1

REPORT INFORMATION
  Report Type: Report from Study
  Country: FR (occurrence: FR)
  Receive Date: 20180116
  Receipt Date: 20180116
  Transmission Date: 20180509
  Serious: Yes (Hospitalization)
  Sender: FDA-Public Use
  Company Number: FR-ASTRAZENECA-2017SE66834

PATIENT
  Age: 59 Year
  Sex: Male
  Weight: 75 kg

DRUGS (15)
  1. MEDI4736 [Suspect]
     Active Substance: DURVALUMAB
     Indication: SQUAMOUS CELL CARCINOMA OF HEAD AND NECK
     Route: 042
     Dates: start: 20170707, end: 20170707
  2. KARDEGIC [Concomitant]
     Active Substance: ASPIRIN DL-LYSINE
     Indication: PROPHYLAXIS
     Dates: start: 2014
  3. ACTISKENAN [Concomitant]
     Active Substance: MORPHINE SULFATE
     Dates: start: 20170602, end: 20170803
  4. EFFERALGAN [Concomitant]
     Active Substance: ACETAMINOPHEN
  5. TOLEXINE [Concomitant]
     Active Substance: DOXYCYCLINE
     Dates: start: 201701, end: 20170623
  6. SKENAN [Concomitant]
     Active Substance: MORPHINE SULFATE
     Dates: start: 20170602, end: 20170622
  7. LAROXYL [Concomitant]
     Active Substance: AMITRIPTYLINE HYDROCHLORIDE
  8. TAHOR [Concomitant]
     Active Substance: ATORVASTATIN CALCIUM
  9. MEDI4736 [Suspect]
     Active Substance: DURVALUMAB
     Indication: SQUAMOUS CELL CARCINOMA OF HEAD AND NECK
     Route: 042
     Dates: start: 20170609, end: 20170609
  10. MEDI4736 [Suspect]
     Active Substance: DURVALUMAB
     Indication: SQUAMOUS CELL CARCINOMA OF HEAD AND NECK
     Route: 042
     Dates: start: 20170623, end: 20170623
  11. MEDI4736 [Suspect]
     Active Substance: DURVALUMAB
     Indication: SQUAMOUS CELL CARCINOMA OF HEAD AND NECK
     Route: 042
     Dates: start: 20170721, end: 20170721
  12. OMEPRAZOLE. [Concomitant]
     Active Substance: OMEPRAZOLE
     Indication: PROPHYLAXIS
     Dates: start: 2004
  13. SERESTA [Concomitant]
     Active Substance: OXAZEPAM
     Dates: start: 201701
  14. DESLORATADINE. [Concomitant]
     Active Substance: DESLORATADINE
     Dates: start: 201701, end: 20170623
  15. IMOVANE [Concomitant]
     Active Substance: ZOPICLONE

REACTIONS (1)
  - Hyperthermia [Recovered/Resolved]

NARRATIVE: CASE EVENT DATE: 20170615
